FAERS Safety Report 7719382-8 (Version None)
Quarter: 2011Q3

REPORT INFORMATION
  Report Type: 
  Country: None (occurrence: None)
  Receive Date: 20110825
  Receipt Date: 20110809
  Transmission Date: 20111222
  Serious: Yes (Hospitalization)
  Sender: FDA-Public Use
  Company Number: 2011MA011588

PATIENT
  Age: 16 Day
  Sex: Male

DRUGS (1)
  1. FEVERALL [Suspect]
     Indication: NASOPHARYNGITIS

REACTIONS (4)
  - EXPOSURE DURING BREAST FEEDING [None]
  - WHEEZING [None]
  - RESPIRATORY SYNCYTIAL VIRUS BRONCHIOLITIS [None]
  - MATERNAL DRUGS AFFECTING FOETUS [None]
